FAERS Safety Report 6631862-5 (Version None)
Quarter: 2010Q1

REPORT INFORMATION
  Report Type: 
  Country: None (occurrence: None)
  Receive Date: 20100312
  Receipt Date: 20100303
  Transmission Date: 20100710
  Serious: Yes (Other)
  Sender: FDA-Public Use
  Company Number: FR-ROCHE-689021

PATIENT
  Sex: Male

DRUGS (1)
  1. TAMIFLU [Suspect]
     Route: 065
     Dates: start: 20091223

REACTIONS (4)
  - CHEST X-RAY ABNORMAL [None]
  - FATIGUE [None]
  - RESPIRATORY FAILURE [None]
  - WEIGHT DECREASED [None]
